FAERS Safety Report 6222565-X (Version None)
Quarter: 2009Q2

REPORT INFORMATION
  Report Type: 
  Country: None (occurrence: None)
  Receive Date: 20090611
  Receipt Date: 20090430
  Transmission Date: 20091009
  Serious: No
  Sender: FDA-Public Use
  Company Number: US-BAYER-200913995NA

PATIENT
  Age: 37 Year
  Sex: Female
  Weight: 61 kg

DRUGS (6)
  1. MIRENA [Suspect]
     Indication: CONTRACEPTION
     Dosage: CONTINUOUS
     Route: 015
     Dates: start: 20031201, end: 20090225
  2. MIRENA [Suspect]
     Dosage: CONTINUOUS
     Route: 015
     Dates: start: 20090225
  3. LEXAPRO [Concomitant]
  4. EFFEXOR [Concomitant]
  5. VALTREX [Concomitant]
  6. MULTI-VITAMINS [Concomitant]

REACTIONS (8)
  - ARTHRALGIA [None]
  - HEADACHE [None]
  - HYPOAESTHESIA FACIAL [None]
  - HYPOMENORRHOEA [None]
  - LIBIDO DECREASED [None]
  - MUSCLE TIGHTNESS [None]
  - PARAESTHESIA [None]
  - WEIGHT INCREASED [None]
